FAERS Safety Report 7484569-9 (Version None)
Quarter: 2011Q1

REPORT INFORMATION
  Report Type: 
  Country: None (occurrence: None)
  Receive Date: 20110309
  Receipt Date: 20101210
  Transmission Date: 20110831
  Serious: No
  Sender: FDA-Public Use
  Company Number: 2010SP064258

PATIENT
  Age: 4 Year
  Sex: Female

DRUGS (2)
  1. SAPHRIS [Suspect]
     Indication: SCHIZOPHRENIA, PARANOID TYPE
  2. ABILIFY [Concomitant]

REACTIONS (1)
  - INTRAOCULAR PRESSURE INCREASED [None]
